FAERS Safety Report 25841917 (Version 2)
Quarter: 2025Q3

REPORT INFORMATION
  Report Type: Spontaneous
  Country: CN (occurrence: CN)
  Receive Date: 20250924
  Receipt Date: 20250926
  Transmission Date: 20251021
  Serious: Yes (Other)
  Sender: PFIZER
  Company Number: CN-PFIZER INC-PV202500113588

PATIENT
  Age: 12 Year
  Sex: Male

DRUGS (1)
  1. XYNTHA [Suspect]
     Active Substance: MOROCTOCOG ALFA
     Dosage: 1,000 IU EACH TIME, 3X/WEEK
     Route: 040

REACTIONS (3)
  - Epistaxis [Unknown]
  - Mouth haemorrhage [Unknown]
  - Arthralgia [Unknown]
